FAERS Safety Report 14924494 (Version 1)
Quarter: 2018Q2

REPORT INFORMATION
  Report Type: Spontaneous
  Country: US (occurrence: US)
  Receive Date: 20180522
  Receipt Date: 20180522
  Transmission Date: 20180711
  Serious: Yes (Hospitalization, Other)
  Sender: FDA-Public Use
  Company Number: US-QILU PHARMACEUTICAL CO.LTD.-QLU-000406-2018

PATIENT
  Age: 66 Year
  Sex: Male
  Weight: 74.84 kg

DRUGS (4)
  1. RAPAMUNE [Concomitant]
     Active Substance: SIROLIMUS
     Indication: PRODUCT USED FOR UNKNOWN INDICATION
     Dosage: UNK
     Route: 065
     Dates: start: 201601
  2. CICLOSPORIN [Concomitant]
     Active Substance: CYCLOSPORINE
     Indication: PRODUCT USED FOR UNKNOWN INDICATION
     Dosage: UNK
     Route: 065
     Dates: start: 201709
  3. CEFEPIME HYDROCHLORIDE. [Suspect]
     Active Substance: CEFEPIME HYDROCHLORIDE
     Indication: PNEUMONIA
     Dosage: 1 DF, TID
     Route: 042
     Dates: start: 20170822, end: 20170908
  4. RAPAMUNE [Concomitant]
     Active Substance: SIROLIMUS
     Dosage: UNK
     Route: 065
     Dates: start: 201601

REACTIONS (7)
  - Renal impairment [Recovering/Resolving]
  - Unresponsive to stimuli [Unknown]
  - Disturbance in attention [Unknown]
  - Glomerular filtration rate decreased [Unknown]
  - Gait inability [Unknown]
  - Encephalopathy [Recovered/Resolved]
  - Speech disorder [Unknown]

NARRATIVE: CASE EVENT DATE: 201708
